FAERS Safety Report 5186909-2 (Version None)
Quarter: 2006Q4

REPORT INFORMATION
  Report Type: 
  Country: None (occurrence: None)
  Receive Date: 20061213
  Receipt Date: 20061204
  Transmission Date: 20070319
  Serious: Yes (Death, Other)
  Sender: FDA-Public Use
  Company Number: 2005041264

PATIENT
  Age: 14 Year
  Sex: Male

DRUGS (7)
  1. NEURONTIN [Suspect]
     Indication: ANXIETY DISORDER
     Dosage: 900 MG (300 MG, 3 IN 1 D)
     Dates: start: 19990422, end: 20020218
  2. NEURONTIN [Suspect]
     Indication: BACK PAIN
     Dosage: 900 MG (300 MG, 3 IN 1 D)
     Dates: start: 19990422, end: 20020218
  3. NEURONTIN [Suspect]
     Indication: BIPOLAR DISORDER
     Dosage: 900 MG (300 MG, 3 IN 1 D)
     Dates: start: 19990422, end: 20020218
  4. DEPAKOTE [Concomitant]
  5. PAXIL [Concomitant]
  6. BUSPAR [Concomitant]
  7. IMIPRAMINE [Concomitant]

REACTIONS (5)
  - ANXIETY [None]
  - COMPLETED SUICIDE [None]
  - INJURY ASPHYXIATION [None]
  - INTENTIONAL SELF-INJURY [None]
  - SUICIDAL IDEATION [None]
